FAERS Safety Report 12646836 (Version 1)
Quarter: 2016Q3

REPORT INFORMATION
  Report Type: Spontaneous
  Country: US (occurrence: None)
  Receive Date: 20160811
  Receipt Date: 20160811
  Transmission Date: 20161109
  Serious: Yes (Hospitalization)
  Sender: FDA-Public Use
  Company Number: None

PATIENT
  Age: 64 Year
  Sex: Female

DRUGS (2)
  1. OPIUM TINCTURE [Concomitant]
     Active Substance: MORPHINE
  2. VOTRIENT [Suspect]
     Active Substance: PAZOPANIB HYDROCHLORIDE
     Indication: BONE CANCER
     Dosage: 800 MG QAM PO
     Route: 048
     Dates: start: 20130702

REACTIONS (2)
  - Hysterectomy [None]
  - Ovarian neoplasm [None]

NARRATIVE: CASE EVENT DATE: 20160801
